FAERS Safety Report 7260347-0 (Version None)
Quarter: 2011Q1

REPORT INFORMATION
  Report Type: 
  Country: None (occurrence: None)
  Receive Date: 20110130
  Receipt Date: 20101020
  Transmission Date: 20110831
  Serious: No
  Sender: FDA-Public Use
  Company Number: US-ABBOTT-10P-163-0679644-00

PATIENT
  Sex: Female
  Weight: 88.53 kg

DRUGS (12)
  1. ALBUTEROL [Concomitant]
     Indication: ASTHMA
     Dosage: NEBULIZER AS NEEDED
  2. SINGULAIR [Concomitant]
     Indication: ASTHMA
  3. UNKNOWN MUSCLE RELAXER [Concomitant]
     Indication: PRODUCT USED FOR UNKNOWN INDICATION
  4. ADVAIR [Concomitant]
     Indication: ASTHMA
  5. LEVOTHYROXINE SODIUM [Concomitant]
     Indication: THYROID DISORDER
  6. HYDROCODONE [Concomitant]
     Indication: PAIN
  7. ZETIA [Concomitant]
     Indication: BLOOD CHOLESTEROL INCREASED
  8. ETODOLAC [Concomitant]
     Indication: RHEUMATOID ARTHRITIS
  9. UNKNOWN BLOOD PRESSURE MEDICATION [Concomitant]
     Indication: HYPERTENSION
  10. UNKNOWN ANXIETY MEDICATION [Concomitant]
     Indication: ANXIETY
  11. HUMIRA [Suspect]
     Indication: RHEUMATOID ARTHRITIS
     Route: 058
  12. ETODOLAC [Concomitant]
     Indication: OSTEOARTHRITIS

REACTIONS (1)
  - OEDEMA PERIPHERAL [None]
